FAERS Safety Report 4940752-5 (Version None)
Quarter: 2006Q1

REPORT INFORMATION
  Report Type: 
  Country: None (occurrence: None)
  Receive Date: 20060313
  Receipt Date: 20060203
  Transmission Date: 20060701
  Serious: Yes (Hospitalization)
  Sender: FDA-Public Use
  Company Number: PHBS2006CH01793

PATIENT
  Age: 53 Year
  Sex: Female

DRUGS (7)
  1. RITALIN [Suspect]
     Dosage: 40 MG/D
     Route: 065
     Dates: start: 20030101, end: 20060113
  2. METHADON STREULI [Suspect]
     Dosage: 150 MG/D
     Route: 048
     Dates: start: 20050601, end: 20060113
  3. KALETRA [Suspect]
     Dosage: 800 MG/D
     Route: 065
     Dates: end: 20060104
  4. DEROXAT [Suspect]
     Dosage: 30 MG/D
     Route: 065
     Dates: end: 20060113
  5. VIDEX [Concomitant]
     Dosage: 250 MG/D
     Dates: start: 20040701, end: 20060104
  6. TENOFOVIR [Concomitant]
     Dosage: 245 MG/D
     Dates: start: 20040701, end: 20060104
  7. FOSAMPRENAVIR [Concomitant]
     Dosage: 1400 MG/D
     Dates: start: 20040701, end: 20060120

REACTIONS (6)
  - DYSPNOEA [None]
  - ELECTROCARDIOGRAM QT PROLONGED [None]
  - HYPERLACTACIDAEMIA [None]
  - PALPITATIONS [None]
  - TORSADE DE POINTES [None]
  - VERTIGO [None]
